FAERS Safety Report 25807153 (Version 3)
Quarter: 2025Q4

REPORT INFORMATION
  Report Type: Report from Study
  Country: CA (occurrence: CA)
  Receive Date: 20250916
  Receipt Date: 20251205
  Transmission Date: 20260118
  Serious: Yes (Hospitalization, Other)
  Sender: CSL BEHRING
  Company Number: CA-BEH-2025217689

PATIENT
  Age: 63 Year
  Sex: Female

DRUGS (1)
  1. HIZENTRA [Suspect]
     Active Substance: HUMAN IMMUNOGLOBULIN G
     Indication: Secondary immunodeficiency
     Dosage: 4 G, QW
     Route: 058
     Dates: start: 20200101

REACTIONS (8)
  - Hospitalisation [Unknown]
  - Hospitalisation [Unknown]
  - Deafness [Unknown]
  - Hypoaesthesia [Unknown]
  - Amnesia [Unknown]
  - Hypoacusis [Unknown]
  - Infusion site swelling [Unknown]
  - Product dose omission in error [Unknown]

NARRATIVE: CASE EVENT DATE: 20250101
